FAERS Safety Report 18150118 (Version 1)
Quarter: 2020Q3

REPORT INFORMATION
  Report Type: Spontaneous
  Country: US (occurrence: US)
  Receive Date: 20200814
  Receipt Date: 20200814
  Transmission Date: 20201103
  Serious: Yes (Disabling)
  Sender: FDA-Public Use
  Company Number: None

PATIENT
  Age: 51 Year
  Sex: Male
  Weight: 104.4 kg

DRUGS (1)
  1. HUMIRA [Suspect]
     Active Substance: ADALIMUMAB
     Indication: IRRITABLE BOWEL SYNDROME
     Dosage: ?          QUANTITY:2 INJECTION(S);OTHER FREQUENCY:ONCE A WEEK;?
     Route: 058
     Dates: start: 20200102, end: 20200612

REACTIONS (4)
  - Withdrawal syndrome [None]
  - Paraesthesia [None]
  - Arthralgia [None]
  - Nervous system disorder [None]

NARRATIVE: CASE EVENT DATE: 20200630
